FAERS Safety Report 19015819 (Version 2)
Quarter: 2021Q2

REPORT INFORMATION
  Report Type: Report from Study
  Country: US (occurrence: US)
  Receive Date: 20210316
  Receipt Date: 20210622
  Transmission Date: 20210717
  Serious: Yes (Hospitalization, Other)
  Sender: FDA-Public Use
  Company Number: US-JNJFOC-20210315990

PATIENT
  Age: 48 Year
  Sex: Male
  Weight: 75.5 kg

DRUGS (1)
  1. MACITENTAN [Suspect]
     Active Substance: MACITENTAN
     Indication: PULMONARY ARTERIAL HYPERTENSION
     Route: 048

REACTIONS (4)
  - Stoma site haemorrhage [Unknown]
  - Venous haemorrhage [Unknown]
  - Hernia [Unknown]
  - Intestinal prolapse [Unknown]

NARRATIVE: CASE EVENT DATE: 20210218
